FAERS Safety Report 6370206-3 (Version None)
Quarter: 2009Q3

REPORT INFORMATION
  Report Type: 
  Country: None (occurrence: None)
  Receive Date: 20090922
  Receipt Date: 20090922
  Transmission Date: 20100115
  Serious: Yes (Disabling, Other)
  Sender: FDA-Public Use
  Company Number: None

PATIENT
  Age: 57 Year
  Sex: Male
  Weight: 70.3075 kg

DRUGS (1)
  1. CYMBALTA [Suspect]
     Indication: DEPRESSION
     Dates: start: 20090317, end: 20090919

REACTIONS (13)
  - ABDOMINAL PAIN [None]
  - ACTIVITIES OF DAILY LIVING IMPAIRED [None]
  - AMNESIA [None]
  - ANXIETY [None]
  - APATHY [None]
  - CONFUSIONAL STATE [None]
  - DISTURBANCE IN ATTENTION [None]
  - DRUG WITHDRAWAL SYNDROME [None]
  - FEELING ABNORMAL [None]
  - INDIFFERENCE [None]
  - INSOMNIA [None]
  - NIGHTMARE [None]
  - STARING [None]
